FAERS Safety Report 25023997 (Version 2)
Quarter: 2025Q1

REPORT INFORMATION
  Report Type: Spontaneous
  Country: NL (occurrence: NL)
  Receive Date: 20250228
  Receipt Date: 20250317
  Transmission Date: 20250408
  Serious: Yes (Hospitalization)
  Sender: PIERRE FABRE MEDICAMENT
  Company Number: NL-ULTRAGENYX PHARMACEUTICAL INC.-NL-UGX-25-00227

PATIENT
  Age: 10 Year
  Sex: Male
  Weight: 29.5 kg

DRUGS (2)
  1. PROPRANOLOL [Suspect]
     Active Substance: PROPRANOLOL HYDROCHLORIDE
     Indication: Product used for unknown indication
     Route: 065
  2. TRIHEPTANOIN [Suspect]
     Active Substance: TRIHEPTANOIN
     Indication: Glycogen storage disease type I

REACTIONS (7)
  - Exercise tolerance decreased [Unknown]
  - Nausea [Unknown]
  - Headache [Unknown]
  - Abdominal pain [Unknown]
  - Vomiting [Unknown]
  - Product administered to patient of inappropriate age [Unknown]
  - Off label use [Unknown]
